FAERS Safety Report 24634338 (Version 2)
Quarter: 2024Q4

REPORT INFORMATION
  Report Type: Spontaneous
  Country: US (occurrence: US)
  Receive Date: 20241119
  Receipt Date: 20241217
  Transmission Date: 20250115
  Serious: Yes (Other)
  Sender: TEVA
  Company Number: US-TEVA-VS-3264526

PATIENT
  Age: 72 Year
  Sex: Male

DRUGS (3)
  1. CEFDINIR [Suspect]
     Active Substance: CEFDINIR
     Indication: Hypogammaglobulinaemia
     Route: 065
  2. RITUXIMAB [Suspect]
     Active Substance: RITUXIMAB
     Indication: Neuromyelitis optica spectrum disorder
     Route: 065
  3. ALLOPURINOL [Suspect]
     Active Substance: ALLOPURINOL
     Indication: Product used for unknown indication
     Route: 065

REACTIONS (2)
  - Psoriasis [Recovered/Resolved]
  - Hypogammaglobulinaemia [Not Recovered/Not Resolved]
